FAERS Safety Report 8306494-3 (Version None)
Quarter: 2012Q2

REPORT INFORMATION
  Report Type: 
  Country: None (occurrence: None)
  Receive Date: 20120424
  Receipt Date: 20120416
  Transmission Date: 20120825
  Serious: Yes (Hospitalization)
  Sender: FDA-Public Use
  Company Number: US-BIOGENIDEC-2012BI011470

PATIENT
  Age: 56 Year
  Sex: Female
  Weight: 53 kg

DRUGS (11)
  1. VESICARE [Concomitant]
     Indication: URINARY INCONTINENCE
     Route: 048
  2. LEXAPRO [Concomitant]
     Route: 048
  3. MACROBID [Concomitant]
     Route: 048
  4. PREMARIN [Concomitant]
     Route: 048
  5. GELNIQUE [Concomitant]
     Route: 062
  6. TYSABRI [Suspect]
     Indication: MULTIPLE SCLEROSIS
     Route: 042
     Dates: start: 20080407, end: 20100714
  7. PROVIGIL [Concomitant]
     Route: 048
  8. TYSABRI [Suspect]
     Route: 042
     Dates: start: 20120213, end: 20120312
  9. ASPIRIN [Concomitant]
     Route: 048
  10. VITAMIN D [Concomitant]
     Route: 048
  11. OXYTROL [Concomitant]
     Route: 023

REACTIONS (4)
  - HEPATITIS CHOLESTATIC [None]
  - CHOLELITHIASIS [None]
  - HEPATIC FAILURE [None]
  - URINARY TRACT INFECTION [None]
